FAERS Safety Report 8432522-0 (Version None)
Quarter: 2012Q2

REPORT INFORMATION
  Report Type: 
  Country: None (occurrence: None)
  Receive Date: 20120613
  Receipt Date: 20120609
  Transmission Date: 20120825
  Serious: Yes (Other)
  Sender: FDA-Public Use
  Company Number: PHHY2012BR050407

PATIENT
  Sex: Female
  Weight: 93 kg

DRUGS (3)
  1. HYDROCHLOROTHIAZIDE [Concomitant]
     Indication: HYPERTENSION
     Dosage: 25 MG, DAILY
     Dates: start: 20110501
  2. SYNTHROID [Concomitant]
     Indication: THYROID DISORDER
     Dosage: 150 MG, DAILY
     Dates: start: 19980101
  3. EXFORGE [Suspect]
     Indication: HYPERTENSION
     Dosage: 1 DF (320/5 MG), DAILY
     Dates: start: 20110501

REACTIONS (1)
  - CHOLELITHIASIS [None]
